FAERS Safety Report 10527002 (Version 1)
Quarter: 2014Q4

REPORT INFORMATION
  Report Type: Spontaneous
  Country: US (occurrence: US)
  Receive Date: 20141020
  Receipt Date: 20141020
  Transmission Date: 20150528
  Serious: Yes (Other)
  Sender: FDA-Public Use
  Company Number: US-CIPLA LTD.-2014US01547

PATIENT

DRUGS (6)
  1. OXALIPLATIN. [Suspect]
     Active Substance: OXALIPLATIN
     Indication: BILE DUCT CANCER
     Dosage: 85 MG/M2 ON DAY 1 AND DAY 15 OF EACH 28-DAY CYCLE
  2. GEMCITABINE [Suspect]
     Active Substance: GEMCITABINE\GEMCITABINE HYDROCHLORIDE
     Indication: GALLBLADDER CANCER
  3. PANITUMUMAB [Suspect]
     Active Substance: PANITUMUMAB
     Indication: GALLBLADDER CANCER
  4. GEMCITABINE [Suspect]
     Active Substance: GEMCITABINE\GEMCITABINE HYDROCHLORIDE
     Indication: BILE DUCT CANCER
     Dosage: 1000 MG/M2 ON DAY 1 AND DAY 15 OF EACH 28-DAY CYCLE
  5. OXALIPLATIN. [Suspect]
     Active Substance: OXALIPLATIN
     Indication: GALLBLADDER CANCER
  6. PANITUMUMAB [Suspect]
     Active Substance: PANITUMUMAB
     Indication: BILE DUCT CANCER
     Dosage: 6 MG/KG ON DAY 1 AND DAY 15 OF EACH 28-DAY CYCLE

REACTIONS (3)
  - Anaemia [Unknown]
  - Hyponatraemia [Unknown]
  - Hyperbilirubinaemia [Unknown]
